FAERS Safety Report 6616117-7 (Version None)
Quarter: 2010Q1

REPORT INFORMATION
  Report Type: 
  Country: None (occurrence: None)
  Receive Date: 20100226
  Receipt Date: 20100215
  Transmission Date: 20100710
  Serious: Yes (Other)
  Sender: FDA-Public Use
  Company Number: 1000010827

PATIENT
  Age: 37 Year
  Sex: Female

DRUGS (8)
  1. ESCITALOPRAM OXALATE [Suspect]
     Indication: ANXIETY
     Dosage: 10 MG (10 MG, 1 IN 1 D), ORAL
     Route: 048
     Dates: start: 20090730
  2. QUETIAPINE [Suspect]
     Indication: DEPRESSION
     Dosage: 50 MG (50 MG,1 IN 1 D), ORAL
     Route: 048
     Dates: start: 20091121, end: 20091121
  3. QUETIAPINE [Concomitant]
     Indication: DEPRESSION
     Dosage: 300 MG (300 MG, 1 IN 1 D), ORAL
     Route: 048
     Dates: start: 20091124, end: 20091223
  4. QUETIAPINE [Suspect]
     Indication: DEPRESSION
     Dosage: 200 MG (200 MG,1 IN 1 D), ORAL
     Route: 048
     Dates: start: 20091224
  5. WELLBUTRIN [Suspect]
     Dosage: 150 MG (150 MG,1 IN 1 D), ORAL
     Route: 048
  6. WELLBUTURIN [Suspect]
     Dosage: 300 MG (150 MG,2 IN 1 D), ORAL
     Route: 048
     Dates: end: 20090101
  7. SLEEPING PILL [Concomitant]
  8. PREMARIN [Concomitant]

REACTIONS (15)
  - APATHY [None]
  - DEPRESSED MOOD [None]
  - DISSOCIATION [None]
  - DIZZINESS [None]
  - DRUG INEFFECTIVE [None]
  - FATIGUE [None]
  - HYPERHIDROSIS [None]
  - INSOMNIA [None]
  - NIGHTMARE [None]
  - OVERDOSE [None]
  - PRESYNCOPE [None]
  - SELF-INJURIOUS IDEATION [None]
  - SOMNOLENCE [None]
  - SUICIDAL IDEATION [None]
  - VOMITING [None]
